FAERS Safety Report 21629834 (Version 1)
Quarter: 2022Q4

REPORT INFORMATION
  Report Type: Spontaneous
  Country: RU (occurrence: RU)
  Receive Date: 20221122
  Receipt Date: 20221122
  Transmission Date: 20230113
  Serious: Yes (Other)
  Sender: FDA-Public Use
  Company Number: RU-009507513-2211RUS006438

PATIENT
  Age: 68 Year
  Sex: Female

DRUGS (1)
  1. LAGEVRIO [Suspect]
     Active Substance: MOLNUPIRAVIR
     Indication: COVID-19 treatment
     Dosage: 4 CAPSULES 2 TIMES A DAY WITH A 12 HOURS BREAK
     Dates: start: 20221114

REACTIONS (2)
  - Thrombosis [Unknown]
  - Dizziness [Unknown]
